FAERS Safety Report 22385016 (Version 1)
Quarter: 2023Q2

REPORT INFORMATION
  Report Type: Spontaneous
  Country: US (occurrence: US)
  Receive Date: 20230530
  Receipt Date: 20230530
  Transmission Date: 20230722
  Serious: Yes (Life-Threatening, Hospitalization, Other)
  Sender: FDA-Public Use
  Company Number: US-PFIZER INC-PV202300093824

PATIENT
  Age: 75 Year
  Sex: Female

DRUGS (9)
  1. AMIODARONE HYDROCHLORIDE [Suspect]
     Active Substance: AMIODARONE HYDROCHLORIDE
     Indication: Atrial fibrillation
     Dosage: 800 MG, 1X/DAY
     Route: 042
  2. AMIODARONE HYDROCHLORIDE [Suspect]
     Active Substance: AMIODARONE HYDROCHLORIDE
     Dosage: 200 MG, 1X/DAY
     Route: 042
  3. JAKAFI [Suspect]
     Active Substance: RUXOLITINIB
     Indication: Polycythaemia vera
     Dosage: 10 MG, 2X/DAY
     Route: 048
     Dates: start: 20210923
  4. JAKAFI [Suspect]
     Active Substance: RUXOLITINIB
     Dosage: 10 MG, 2X/DAY
     Route: 048
     Dates: start: 202109
  5. JAKAFI [Suspect]
     Active Substance: RUXOLITINIB
     Dosage: 10 MG, 1X/DAY
     Route: 048
  6. JAKAFI [Suspect]
     Active Substance: RUXOLITINIB
     Dosage: 10 MG, 2X/DAY
     Route: 048
     Dates: start: 20210923
  7. B-COMPLEX [VITAMIN B COMPLEX] [Concomitant]
     Dosage: UNK
  8. METOPROLOL [Concomitant]
     Active Substance: METOPROLOL
     Dosage: UNK
  9. DIGOXIN [Concomitant]
     Active Substance: DIGOXIN
     Dosage: UNK

REACTIONS (9)
  - Staphylococcal infection [Unknown]
  - Joint dislocation [Recovering/Resolving]
  - Mobility decreased [Unknown]
  - Dysstasia [Unknown]
  - Paraesthesia [Unknown]
  - Motor dysfunction [Unknown]
  - Anger [Unknown]
  - Haematocrit decreased [Unknown]
  - Haemoglobin decreased [Unknown]
